FAERS Safety Report 6433767-1 (Version None)
Quarter: 2009Q4

REPORT INFORMATION
  Report Type: 
  Country: None (occurrence: None)
  Receive Date: 20091110
  Receipt Date: 20091103
  Transmission Date: 20100525
  Serious: Yes (Other)
  Sender: FDA-Public Use
  Company Number: US-ROCHE-666461

PATIENT
  Sex: Male

DRUGS (3)
  1. PEGASYS [Suspect]
     Indication: HEPATITIS C
     Route: 065
     Dates: start: 20090429, end: 20091006
  2. RIBAVIRIN [Suspect]
     Indication: HEPATITIS C
     Dosage: 3 PILLS TAKEN TWICE ; FORM:PILL
     Route: 065
     Dates: start: 20090429
  3. RIBAVIRIN [Suspect]
     Dosage: 2 PILLS TAKEN TWICE DAILY
     Route: 065
     Dates: end: 20091006

REACTIONS (5)
  - ARTHRALGIA [None]
  - HAEMOGLOBIN DECREASED [None]
  - HAEMORRHAGE [None]
  - MYALGIA [None]
  - THROMBOSIS [None]
